FAERS Safety Report 9272123 (Version 2)
Quarter: 2013Q2

REPORT INFORMATION
  Report Type: Spontaneous
  Country: JP (occurrence: JP)
  Receive Date: 20130506
  Receipt Date: 20130531
  Transmission Date: 20140414
  Serious: Yes (Hospitalization)
  Sender: FDA-Public Use
  Company Number: PHHY2013JP043270

PATIENT
  Age: 45 Year
  Sex: Male

DRUGS (3)
  1. 5-FLUOROURACIL [Suspect]
     Indication: COLON CANCER
     Dates: start: 201103
  2. FOLINIC ACID [Suspect]
     Indication: COLON CANCER
     Dates: start: 201103
  3. OXALIPLATIN [Suspect]
     Indication: COLON CANCER
     Dates: start: 201103

REACTIONS (4)
  - Cholecystitis [Recovered/Resolved]
  - Liver injury [Unknown]
  - Metastases to liver [Unknown]
  - Neutropenia [Unknown]
